FAERS Safety Report 10415243 (Version 1)
Quarter: 2014Q3

REPORT INFORMATION
  Report Type: Report from Study
  Country: IT (occurrence: IT)
  Receive Date: 20140828
  Receipt Date: 20140828
  Transmission Date: 20150326
  Serious: Yes (Other)
  Sender: FDA-Public Use
  Company Number: PHHY2014IT104591

PATIENT
  Age: 45 Year
  Sex: Female

DRUGS (1)
  1. EXTAVIA [Suspect]
     Active Substance: INTERFERON BETA-1B
     Dosage: UNK UKN, UNK

REACTIONS (5)
  - Bladder disorder [Unknown]
  - Vertigo [Unknown]
  - Fear [Unknown]
  - Dysuria [Unknown]
  - Benign ear neoplasm [Unknown]
